FAERS Safety Report 7716674-3 (Version None)
Quarter: 2011Q3

REPORT INFORMATION
  Report Type: 
  Country: None (occurrence: None)
  Receive Date: 20110829
  Receipt Date: 20110202
  Transmission Date: 20111222
  Serious: No
  Sender: FDA-Public Use
  Company Number: US-ASTRAZENECA-2011SE05854

PATIENT
  Age: 72 Year
  Sex: Male
  Weight: 90.7 kg

DRUGS (5)
  1. IRESSA [Suspect]
     Indication: LUNG NEOPLASM MALIGNANT
     Route: 048
     Dates: start: 20020101
  2. COLCHICINE [Concomitant]
  3. AMLODIPINE [Concomitant]
  4. DIGOXIN [Concomitant]
  5. DILTIAZEM [Concomitant]

REACTIONS (5)
  - VISION BLURRED [None]
  - ACNE [None]
  - CORNEAL EROSION [None]
  - CATARACT [None]
  - DRY EYE [None]
